FAERS Safety Report 18509857 (Version 1)
Quarter: 2020Q4

REPORT INFORMATION
  Report Type: Spontaneous
  Country: CA (occurrence: CA)
  Receive Date: 20201117
  Receipt Date: 20201117
  Transmission Date: 20210114
  Serious: Yes (Hospitalization)
  Sender: FDA-Public Use
  Company Number: CA-JNJFOC-20201119708

PATIENT
  Age: 59 Year
  Sex: Female

DRUGS (4)
  1. INFLIXIMAB, RECOMBINANT [Suspect]
     Active Substance: INFLIXIMAB
     Indication: CROHN^S DISEASE
     Route: 042
  2. DILAUDID [Concomitant]
     Active Substance: HYDROMORPHONE HYDROCHLORIDE
     Dosage: FREQUENCY- AS REQUIRED
  3. ACETAMINOPHEN AND CODEINE [Concomitant]
     Active Substance: ACETAMINOPHEN\CODEINE PHOSPHATE
  4. GRAVOL [Concomitant]
     Active Substance: DIMENHYDRINATE
     Dosage: FREQUENCY- AS REQUIRED

REACTIONS (12)
  - Tremor [Unknown]
  - Arthralgia [Unknown]
  - Intentional product use issue [Unknown]
  - Muscular weakness [Unknown]
  - Limb fracture [Unknown]
  - Condition aggravated [Unknown]
  - Oxygen saturation abnormal [Unknown]
  - Headache [Unknown]
  - Fall [Unknown]
  - Off label use [Unknown]
  - Inappropriate schedule of product administration [Unknown]
  - Blood pressure increased [Unknown]
